FAERS Safety Report 8581981 (Version 4)
Quarter: 2013Q1

REPORT INFORMATION
  Report Type: Spontaneous
  Country: MX (occurrence: MX)
  Receive Date: 20120528
  Receipt Date: 20130311
  Transmission Date: 20140127
  Serious: Yes (Other)
  Sender: FDA-Public Use
  Company Number: PHHY2012MX044811

PATIENT
  Age: 63 Year
  Sex: Female

DRUGS (4)
  1. EXFORGE [Suspect]
     Indication: HYPERTENSION
     Dosage: 2 DF (160/10 MG), PER DAY
  2. EXFORGE [Suspect]
     Dosage: 1 DF (160/10MG), DAILY
     Route: 048
     Dates: start: 20120522
  3. AVAPENA [Concomitant]
     Indication: DERMATITIS ALLERGIC
  4. ASPIRIN PROTECT [Concomitant]
     Indication: CARDIOVASCULAR EVENT PROPHYLAXIS
     Dosage: UNK UKN, UNK

REACTIONS (5)
  - Salmonellosis [Recovered/Resolved]
  - Bronchitis [Recovered/Resolved]
  - Blood pressure inadequately controlled [Recovered/Resolved]
  - Nausea [Recovered/Resolved]
  - Vomiting [Recovered/Resolved]
